FAERS Safety Report 10951679 (Version 2)
Quarter: 2015Q2

REPORT INFORMATION
  Report Type: Spontaneous
  Country: US (occurrence: US)
  Receive Date: 20150324
  Receipt Date: 20150525
  Transmission Date: 20150821
  Serious: No
  Sender: FDA-Public Use
  Company Number: US-JNJFOC-20140411577

PATIENT
  Age: 31 Year
  Sex: Female
  Weight: 76.2 kg

DRUGS (29)
  1. MONISTAT [Concomitant]
     Active Substance: MICONAZOLE NITRATE
     Indication: PRURITUS
     Dosage: PERI-AREA (PRN)
     Route: 065
  2. LAC-HYDRIN [Concomitant]
     Active Substance: AMMONIUM LACTATE
     Dosage: 8AM/8PM
     Route: 065
  3. BACITRACIN. [Concomitant]
     Active Substance: BACITRACIN
     Dosage: QHS P.R.N
     Route: 045
  4. VITAMIN C [Concomitant]
     Active Substance: ASCORBIC ACID
     Dosage: 8 AM
     Route: 048
  5. MILK OF MAGNESIA [Concomitant]
     Active Substance: MAGNESIUM HYDROXIDE
     Dosage: QHS 8PM
     Route: 048
  6. ABREVA [Concomitant]
     Active Substance: DOCOSANOL
     Indication: ORAL HERPES
     Dosage: APPLY 5 TIMES TO AFFECTED AREA UNTIL CLEAR. P.R.N
     Route: 065
  7. IBUPROFEN. [Concomitant]
     Active Substance: IBUPROFEN
     Indication: CONTUSION
     Route: 065
     Dates: start: 20140425, end: 20140502
  8. PROZAC [Concomitant]
     Active Substance: FLUOXETINE HYDROCHLORIDE
     Dosage: 1 TAB QAM (8AM)
     Route: 048
  9. TYLENOL [Concomitant]
     Active Substance: ACETAMINOPHEN
     Indication: PAIN
     Dosage: P.R.N
     Route: 048
  10. LORATADINE. [Concomitant]
     Active Substance: LORATADINE
     Dosage: 8AM
     Route: 048
  11. GABA [Concomitant]
     Active Substance: .GAMMA.-AMINOBUTYRIC ACID
     Dosage: 8AM/8PM
     Route: 048
  12. REFRESH [Concomitant]
     Active Substance: UNSPECIFIED INGREDIENT
     Dosage: 1 DROP PER EYE
     Route: 047
  13. NASONEX [Concomitant]
     Active Substance: MOMETASONE FUROATE
     Dosage: 1 SPRAY TO EACH NOSTRIL. AT 8 AM
     Route: 045
  14. METHYLPHENIDATE [Concomitant]
     Active Substance: METHYLPHENIDATE
     Dosage: 8AM/4PM
     Route: 048
  15. DESMOPRESSIN ACETATE. [Concomitant]
     Active Substance: DESMOPRESSIN ACETATE
     Dosage: 1 PUFF PER NOSTRIL QHS (8PM)
     Route: 045
  16. CLINDAMYCIN [Concomitant]
     Active Substance: CLINDAMYCIN\CLINDAMYCIN PHOSPHATE
     Dosage: 8AM/8PM
     Route: 065
  17. FLUORIDE, COMBINATIONS [Concomitant]
     Dosage: QAM (8AM) AND QPM (8PM) AFTER BRUSHING TEETH
     Route: 048
  18. TRIAMCINOLONE [Concomitant]
     Active Substance: TRIAMCINOLONE
     Indication: ERYTHEMA
     Dosage: P.R.N
     Route: 065
  19. VICKS DAYQUIL [Concomitant]
     Active Substance: DEXTROMETHORPHAN HYDROBROMIDE\GUAIFENESIN
     Indication: NASAL CONGESTION
     Dosage: P.R.N
     Route: 048
  20. TUSSIN DM [Concomitant]
     Active Substance: DEXTROMETHORPHAN HYDROBROMIDE\GUAIFENESIN
     Indication: COUGH
     Dosage: 2 TSP
     Route: 048
  21. TOPAMAX [Concomitant]
     Active Substance: TOPIRAMATE
     Dosage: 8AM/8PM
     Route: 048
  22. TOPAMAX [Concomitant]
     Active Substance: TOPIRAMATE
     Dosage: (8AM/8PM)
     Route: 048
  23. REFRESH [Concomitant]
     Active Substance: UNSPECIFIED INGREDIENT
     Dosage: P.R.N
     Route: 047
  24. DIPHENHYDRAMINE [Concomitant]
     Active Substance: DIPHENHYDRAMINE
     Indication: PRURITUS
     Dosage: P.R.N
     Route: 048
  25. RISPERDAL CONSTA [Suspect]
     Active Substance: RISPERIDONE
     Indication: BORDERLINE PERSONALITY DISORDER
     Route: 030
  26. RISPERDAL CONSTA [Suspect]
     Active Substance: RISPERIDONE
     Indication: IMPULSE-CONTROL DISORDER
     Route: 030
  27. BENZOTROPINE [Concomitant]
     Active Substance: BENZTROPINE
     Dosage: 8AM/8PM
     Route: 048
  28. DEPO-PROVERA [Concomitant]
     Active Substance: MEDROXYPROGESTERONE ACETATE
     Route: 030
  29. TYLENOL [Concomitant]
     Active Substance: ACETAMINOPHEN
     Indication: PYREXIA
     Dosage: P.R.N
     Route: 048

REACTIONS (2)
  - Drug dose omission [Unknown]
  - Product physical issue [Recovered/Resolved]

NARRATIVE: CASE EVENT DATE: 20140415
